FAERS Safety Report 17286065 (Version 3)
Quarter: 2024Q1

REPORT INFORMATION
  Report Type: Spontaneous
  Country: AT (occurrence: AT)
  Receive Date: 20200118
  Receipt Date: 20240326
  Transmission Date: 20240410
  Serious: Yes (Death, Hospitalization, Other)
  Sender: FDA-Public Use
  Company Number: AT-TEVA-2018-AT-926235

PATIENT
  Age: 80 Year
  Sex: Female

DRUGS (87)
  1. CLOPIDOGREL [Suspect]
     Active Substance: CLOPIDOGREL BISULFATE
     Indication: Coronary artery disease
     Dosage: 75 MILLIGRAM, ONCE A DAY
     Route: 048
  2. ACETYLCYSTEINE [Interacting]
     Active Substance: ACETYLCYSTEINE
     Indication: Chronic obstructive pulmonary disease
     Dosage: 600 MILLIGRAM, ONCE A DAY, (ONCE IN THE MORNING FOR 7 DAYS)
     Route: 065
  3. PREDNISONE [Suspect]
     Active Substance: PREDNISONE
     Indication: Chronic obstructive pulmonary disease
     Dosage: 25 MILLIGRAM, ONCE A DAY
     Route: 065
  4. ASPIRIN [Interacting]
     Active Substance: ASPIRIN
     Indication: Coronary artery disease
     Dosage: 100 MILLIGRAM, ONCE A DAY, ONCE IN THE MORNING
     Route: 065
  5. ACETAZOLAMIDE [Interacting]
     Active Substance: ACETAZOLAMIDE
     Indication: Hypercapnia
     Dosage: 250 MILLIGRAM, EVERY WEEK
     Route: 065
     Dates: start: 20151123
  6. ACETAZOLAMIDE [Interacting]
     Active Substance: ACETAZOLAMIDE
     Indication: Alkalosis
     Dosage: 50 MILLIGRAM, ONCE A DAY, (ONCE IN THE MORNING)
     Route: 065
  7. ACETAZOLAMIDE [Interacting]
     Active Substance: ACETAZOLAMIDE
     Dosage: 50 MILLIGRAM, ONCE A DAY, (ONCE IN THE MORNING)
     Route: 065
  8. ALPRAZOLAM [Suspect]
     Active Substance: ALPRAZOLAM
     Indication: Fear
     Dosage: 0.5 MILLIGRAM,(IN TWO DIVIDED DOSES, ONE AT MORNING AND ONE AT NIGHT)
     Route: 065
  9. ALPRAZOLAM [Suspect]
     Active Substance: ALPRAZOLAM
     Indication: Dyspnoea
     Dosage: 0.5 MILLIGRAM
     Route: 065
  10. ATORVASTATIN [Interacting]
     Active Substance: ATORVASTATIN
     Indication: Hypercholesterolaemia
     Dosage: 40 MILLIGRAM, ONCE A DAY,ONCE A NIGHT
     Route: 065
  11. BENSERAZIDE [Suspect]
     Active Substance: BENSERAZIDE
     Indication: Restless legs syndrome
     Dosage: 25 MILLIGRAM, ONCE A DAY, (ONCE AT NIGHT)
     Route: 065
  12. BISOPROLOL [Suspect]
     Active Substance: BISOPROLOL\BISOPROLOL FUMARATE
     Indication: Coronary artery disease
     Dosage: 2.5 MILLIGRAM, TWO TIMES A DAY
     Route: 065
  13. BISOPROLOL [Suspect]
     Active Substance: BISOPROLOL\BISOPROLOL FUMARATE
     Dosage: 3 MILLIGRAM,DRUG INTERVAL DOSAGE UNIT NUMBER 1 DAY
     Route: 065
  14. BISOPROLOL FUMARATE [Suspect]
     Active Substance: BISOPROLOL FUMARATE
     Indication: Product used for unknown indication
     Dosage: 3 MILLIGRAM, (DRUG INTERVAL DOSAGE UNIT NUMBER 1 DAY)
     Route: 065
  15. DICLOFENAC [Interacting]
     Active Substance: DICLOFENAC
     Indication: Pain
     Dosage: 75 MILLIGRAM,(AS NEEDED IN CASE OF PAIN; MAXIMUM 2X1)
     Route: 065
  16. DICLOFENAC [Interacting]
     Active Substance: DICLOFENAC
     Dosage: 75 MILLIGRAM, ONCE A DAY, (75 MG, BID)
     Route: 065
  17. DICLOFENAC [Interacting]
     Active Substance: DICLOFENAC
     Dosage: 150 MILLIGRAM, ONCE A DAY, (DRUG INTERVAL DOSAGE UNIT NUMBER 1 DAY)
     Route: 065
  18. DIOSMIN [Suspect]
     Active Substance: DIOSMIN
     Indication: Peripheral venous disease
     Dosage: 450 MILLIGRAM, ONCE A DAY, (ONCE IN THE MORNING)
     Route: 065
  19. DIOSMIN [Suspect]
     Active Substance: DIOSMIN
     Dosage: 450 MILLIGRAM, ONCE A DAY, (AT PATIENTS INSISTENCE)
     Route: 065
  20. DULOXETINE HYDROCHLORIDE [Interacting]
     Active Substance: DULOXETINE HYDROCHLORIDE
     Indication: Pain
     Dosage: 60 MILLIGRAM, TWO TIMES A DAY
     Route: 065
  21. DULOXETINE HYDROCHLORIDE [Interacting]
     Active Substance: DULOXETINE HYDROCHLORIDE
     Indication: Depression
     Dosage: 600 MILLIGRAM, ONCE A DAY
     Route: 065
  22. DULOXETINE [Suspect]
     Active Substance: DULOXETINE
     Indication: Pain
     Dosage: 60 MILLIGRAM, ONCE A DAY, (ONCE IN THE MORNING)
     Route: 065
  23. DULOXETINE [Suspect]
     Active Substance: DULOXETINE
     Indication: Depression
     Dosage: UNK
     Route: 065
  24. FENOTEROL [Interacting]
     Active Substance: FENOTEROL
     Indication: Chronic obstructive pulmonary disease
     Dosage: 0.05 MILLIGRAM, TWO TIMES A DAY
     Route: 055
  25. FLUTICASONE [Interacting]
     Active Substance: FLUTICASONE
     Indication: Chronic obstructive pulmonary disease
     Dosage: 920 MICROGRAM, ONCE A DAY
     Route: 055
     Dates: start: 20151123
  26. GABAPENTIN [Suspect]
     Active Substance: GABAPENTIN
     Indication: Pain
     Dosage: 600 MILLIGRAM, ONCE A DAY, (0.5 PER 1 DAY)
     Route: 065
  27. GABAPENTIN [Suspect]
     Active Substance: GABAPENTIN
     Dosage: 1200 MILLIGRAM, ONCE A DAY
     Route: 065
  28. LEVOTHYROXINE [Interacting]
     Active Substance: LEVOTHYROXINE\LEVOTHYROXINE SODIUM
     Indication: Hypothyroidism
     Dosage: 75 MICROGRAM, ONCE A DAY, ONCE IN THE MORNING
     Route: 065
  29. LEVOTHYROXINE [Interacting]
     Active Substance: LEVOTHYROXINE\LEVOTHYROXINE SODIUM
     Dosage: 125 MICROGRAM, ONCE A DAY, HALF DOSE ONCE IN THE MORNING
     Route: 065
  30. HYDROMORPHONE [Suspect]
     Active Substance: HYDROMORPHONE
     Indication: Pain
     Dosage: 4 MILLIGRAM, ONCE A DAY,(ONCE IN THE MORNING)
     Route: 065
  31. HYDROMORPHONE HYDROCHLORIDE [Suspect]
     Active Substance: HYDROMORPHONE HYDROCHLORIDE
     Indication: Pain
     Dosage: 4 MILLIGRAM, ONCE A DAY, (ONCE IN THE MORNING)
     Route: 065
  32. IBANDRONIC ACID [Interacting]
     Active Substance: IBANDRONIC ACID
     Indication: Osteoporosis
     Dosage: 3 MILLIGRAM, (EVERY 3 MONTHS)
     Route: 065
  33. IBANDRONIC ACID [Interacting]
     Active Substance: IBANDRONIC ACID
     Dosage: 3 MILLIGRAM,3 MONTH (EVERY 3 MONTHS)
     Route: 065
  34. LEVODOPA [Interacting]
     Active Substance: LEVODOPA
     Indication: Restless legs syndrome
     Dosage: 100 MILLIGRAM, ONCE A DAY, (ONCE AT NIGHT)
     Route: 065
  35. METAMIZOLE SODIUM [Interacting]
     Active Substance: METAMIZOLE SODIUM
     Indication: Product used for unknown indication
     Dosage: 25 MILLIGRAM, ONCE A DAY, (25 MG, BID)
     Route: 042
  36. METAMIZOLE SODIUM [Suspect]
     Active Substance: METAMIZOLE SODIUM
     Indication: Product used for unknown indication
     Dosage: 25 MILLIGRAM
     Route: 065
  37. METHYLPREDNISOLONE [Interacting]
     Active Substance: METHYLPREDNISOLONE
     Indication: Product used for unknown indication
     Dosage: 64 MILLIGRAM, ONCE A DAY
     Route: 042
  38. OXYGEN [Interacting]
     Active Substance: OXYGEN
     Indication: Hypoxia
     Dosage: 2 LITER, (2L/MIN CONTINUOSLY)
     Route: 065
  39. OXYGEN [Interacting]
     Active Substance: OXYGEN
     Indication: Chronic obstructive pulmonary disease
     Dosage: UNK
     Route: 065
  40. OXYGEN [Interacting]
     Active Substance: OXYGEN
     Dosage: UNK
     Route: 065
  41. OXYGEN [Interacting]
     Active Substance: OXYGEN
     Indication: Hypoxia
     Dosage: UNK
     Route: 065
  42. OXYGEN [Interacting]
     Active Substance: OXYGEN
     Indication: Peripheral venous disease
     Dosage: 2 LITER, (2L/MIN)
     Route: 065
  43. OMEPRAZOLE [Suspect]
     Active Substance: OMEPRAZOLE
     Indication: Gastritis
     Dosage: 40 MILLIGRAM, TWO TIMES A DAY, (0.5 PER 1 DAY)
     Route: 065
  44. PRAMIPEXOLE [Suspect]
     Active Substance: PRAMIPEXOLE\PRAMIPEXOLE DIHYDROCHLORIDE
     Indication: Restless legs syndrome
     Dosage: 2.1 MILLIGRAM, ONCE A DAY,(ONCE IN THE MORNING)
     Route: 065
  45. PRAMIPEXOLE [Suspect]
     Active Substance: PRAMIPEXOLE\PRAMIPEXOLE DIHYDROCHLORIDE
     Dosage: 2 MILLIGRAM, ONCE A DAY
     Route: 065
  46. PRAMIPEXOLE DIHYDROCHLORIDE [Interacting]
     Active Substance: PRAMIPEXOLE DIHYDROCHLORIDE
     Indication: Restless legs syndrome
     Dosage: 2.1 MG, QD
     Route: 065
  47. RISPERIDONE [Suspect]
     Active Substance: RISPERIDONE
     Indication: Product used for unknown indication
     Dosage: 1 MILLIGRAM,(HALF DOSE AT NIGHT)
     Route: 065
  48. SALMETEROL [Interacting]
     Active Substance: SALMETEROL
     Indication: Chronic obstructive pulmonary disease
     Dosage: 47 MICROGRAM, TWO TIMES A DAY
     Route: 055
  49. SERTRALINE [Suspect]
     Active Substance: SERTRALINE HYDROCHLORIDE
     Indication: Depression
     Dosage: 50 MILLIGRAM, ONCE A DAY,(ONCE IN THE MORNING)
     Route: 065
  50. SERTRALINE [Suspect]
     Active Substance: SERTRALINE HYDROCHLORIDE
     Indication: Panic attack
     Dosage: UNK
     Route: 065
  51. SERTRALINE [Suspect]
     Active Substance: SERTRALINE HYDROCHLORIDE
     Indication: Restless legs syndrome
     Dosage: 25 MILLIGRAM, ONCE A DAY, QD
     Route: 065
  52. SPIRIVA [Interacting]
     Active Substance: TIOTROPIUM BROMIDE MONOHYDRATE
     Indication: Chronic obstructive pulmonary disease
     Dosage: 18 MICROGRAM, ONCE A DAY,(18 UG, PUFF (1 DOSAGE) INHALATION POWDER, HARD CAPSULE)
     Route: 065
     Dates: start: 20151123
  53. TRAMADOL [Interacting]
     Active Substance: TRAMADOL\TRAMADOL HYDROCHLORIDE
     Indication: Pain
     Dosage: 200 MILLIGRAM, ONCE A DAY, ONCE AT NIGHT
     Route: 065
  54. THEOPHYLLINE [Interacting]
     Active Substance: THEOPHYLLINE
     Indication: Chronic obstructive pulmonary disease
     Dosage: 200 MILLIGRAM, TWO TIMES A DAY, (0.5 PER 1 DAY)
     Route: 065
  55. TIOTROPIUM [Interacting]
     Active Substance: TIOTROPIUM
     Indication: Chronic obstructive pulmonary disease
     Dosage: 18 MICROGRAM, ONCE A DAY, (PUFF ONCE IN THE MORNING)
     Route: 055
  56. VITAMIN D [Interacting]
     Active Substance: VITAMIN D NOS
     Indication: Vitamin D deficiency
     Dosage: 16000 INTERNATIONAL UNIT, EVERY WEEK
     Route: 065
  57. VITAMIN D [Interacting]
     Active Substance: VITAMIN D NOS
     Dosage: 16000 INTERNATIONAL UNIT, (16000 IU, 1/WEEK)
     Route: 065
  58. IPRATROPIUM [Concomitant]
     Active Substance: IPRATROPIUM
     Indication: Chronic obstructive pulmonary disease
     Dosage: 0.02 MILLIGRAM,(PUFFS AS NEEDED IN CASE OF DYSPNOEA; MAXIMUM 4X2)
     Route: 065
  59. IPRATROPIUM [Concomitant]
     Active Substance: IPRATROPIUM
     Dosage: 0.02 MILLIGRAM,(PUFFS AS NEEDED IN CASE OF DYSPNOEA; MAXIMUM 4X2)
     Route: 055
  60. PIPERACILLIN AND TAZOBACTAM [Concomitant]
     Active Substance: PIPERACILLIN SODIUM\TAZOBACTAM SODIUM
     Indication: Product used for unknown indication
     Dosage: UNK
     Route: 065
  61. PIPERACILLIN AND TAZOBACTAM [Concomitant]
     Active Substance: PIPERACILLIN SODIUM\TAZOBACTAM SODIUM
     Dosage: UNK
     Route: 065
  62. PREDNISONE [Concomitant]
     Active Substance: PREDNISONE
     Indication: Chronic obstructive pulmonary disease
     Dosage: 5 MILLIGRAM DAILY; ONCE IN THE MORNING
     Route: 065
  63. PREDNISONE [Concomitant]
     Active Substance: PREDNISONE
     Dosage: 25 MILLIGRAM, ONCE A DAY,(ONCE IN THE MORNING)
     Route: 065
  64. HESPERIDIN [Concomitant]
     Active Substance: HESPERIDIN
     Indication: Peripheral venous disease
     Dosage: UNK
     Route: 065
  65. HESPERIDIN [Concomitant]
     Active Substance: HESPERIDIN
     Dosage: 50 MILLIGRAM, ONCE A DAY, (ONCE IN THE MORNING)
     Route: 065
  66. ALUMINUM HYDROXIDE [Concomitant]
     Active Substance: ALUMINUM HYDROXIDE
     Indication: Gastrooesophageal reflux disease
     Dosage: UNK,GEL
     Route: 065
  67. ALUMINUM HYDROXIDE [Concomitant]
     Active Substance: ALUMINUM HYDROXIDE
     Dosage: 340 MILLIGRAM, (AS NEEDED, MAXIMUM 2X1)
     Route: 065
  68. DIPHENHYDRAMINE [Concomitant]
     Active Substance: DIPHENHYDRAMINE
     Indication: Antiallergic therapy
     Dosage: UNK
     Route: 065
  69. FUROSEMIDE [Concomitant]
     Active Substance: FUROSEMIDE
     Indication: Diuretic therapy
     Dosage: 40 MILLIGRAM
     Route: 065
  70. SALMETEROL [Concomitant]
     Active Substance: SALMETEROL
     Indication: Chronic obstructive pulmonary disease
     Dosage: 94 MICROGRAM, ONCE A DAY, (47 MICROGRAM BID 2-0-2)
     Route: 055
  71. SALMETEROL [Concomitant]
     Active Substance: SALMETEROL
     Dosage: 94 MICROGRAM, ONCE A DAY,QD
     Route: 055
  72. SALMETEROL [Concomitant]
     Active Substance: SALMETEROL
     Dosage: 47 MICROGRAM (TWO PUFFS IN THE MORNING AND TWO PUFFS AT NIGHT)
     Route: 065
  73. SALMETEROL [Concomitant]
     Active Substance: SALMETEROL
     Dosage: 47 MICROGRAM, ONCE A DAY (BID (2-0-2) )
     Route: 055
  74. MORPHINE HYDROCHLORIDE [Concomitant]
     Active Substance: MORPHINE HYDROCHLORIDE
     Indication: Product used for unknown indication
     Dosage: UNK
     Route: 065
  75. FLUTICASONE [Concomitant]
     Active Substance: FLUTICASONE
     Indication: Chronic obstructive pulmonary disease
     Dosage: 460 MICROGRAM, ONCE A DAY,BID
     Route: 055
  76. IBANDRONIC ACID [Concomitant]
     Active Substance: IBANDRONIC ACID
     Indication: Osteoporosis
     Dosage: UNK
     Route: 065
  77. IBANDRONIC ACID [Concomitant]
     Active Substance: IBANDRONIC ACID
     Indication: Peripheral venous disease
     Dosage: 3 MILLIGRAM,EVERY 3 MONTHS
     Route: 065
  78. TIOTROPIUM [Concomitant]
     Active Substance: TIOTROPIUM
     Indication: Chronic obstructive pulmonary disease
     Dosage: 18 MICROGRAM, ONCE A DAY
     Route: 055
  79. THEOPHYLLINE [Concomitant]
     Active Substance: THEOPHYLLINE
     Indication: Chronic obstructive pulmonary disease
     Dosage: 200 MILLIGRAM, ONCE A DAY,QD (0-0-1)
     Route: 065
  80. ATORVASTATIN [Concomitant]
     Active Substance: ATORVASTATIN
     Indication: Hypercholesterolaemia
     Dosage: 40 MILLIGRAM, ONCE A DAY (0-0-1)
     Route: 065
  81. DIOSMIN [Concomitant]
     Active Substance: DIOSMIN
     Indication: Peripheral venous disease
     Dosage: 1 DOSAGE FORM, ONCE A DAY,(450 MG/50 MG),QD (1-0-0)
     Route: 065
  82. FENOTEROL [Concomitant]
     Active Substance: FENOTEROL
     Indication: Chronic obstructive pulmonary disease
     Dosage: UNK, DAILY (0.05 MG/0.02 MG), BID
     Route: 055
  83. LEVOTHYROXINE [Concomitant]
     Active Substance: LEVOTHYROXINE\LEVOTHYROXINE SODIUM
     Indication: Hypothyroidism
     Dosage: 75 MICROGRAM, ONCE A DAY
     Route: 065
  84. DICLOFENAC [Concomitant]
     Active Substance: DICLOFENAC
     Indication: Chronic obstructive pulmonary disease
     Dosage: 25 MILLIGRAM, ONCE A DAY, (QD (1-0-0))
     Route: 065
  85. DICLOFENAC [Concomitant]
     Active Substance: DICLOFENAC
     Indication: Pain
     Dosage: 75 MILLIGRAM, ONCE A DAY, BID
     Route: 065
  86. OMEPRAZOLE [Concomitant]
     Active Substance: OMEPRAZOLE
     Indication: Gastritis
     Dosage: 40 MILLIGRAM, ONCE A DAY, (QD (1-0-0))
     Route: 065
  87. ACETYLCYSTEINE [Concomitant]
     Active Substance: ACETYLCYSTEINE
     Indication: Chronic obstructive pulmonary disease
     Dosage: 600 MILLIGRAM, ONCE A DAY, (QD (1-0-0))
     Route: 065

REACTIONS (17)
  - Death [Fatal]
  - Arthralgia [Fatal]
  - Acute respiratory failure [Fatal]
  - Acute myocardial infarction [Fatal]
  - Back pain [Fatal]
  - Clostridium difficile colitis [Fatal]
  - Chronic obstructive pulmonary disease [Fatal]
  - Delirium [Fatal]
  - Drug interaction [Fatal]
  - Erysipelas [Fatal]
  - Hypercapnia [Fatal]
  - Lung disorder [Fatal]
  - Urinary tract infection [Fatal]
  - Off label use [Fatal]
  - Pain [Fatal]
  - Somnolence [Fatal]
  - Prescribed underdose [Unknown]

NARRATIVE: CASE EVENT DATE: 20151001
